FAERS Safety Report 5537689-X (Version None)
Quarter: 2007Q4

REPORT INFORMATION
  Report Type: 
  Country: None (occurrence: None)
  Receive Date: 20071207
  Receipt Date: 20071120
  Transmission Date: 20080405
  Serious: No
  Sender: FDA-Public Use
  Company Number: US-JNJFOC-20071108987

PATIENT
  Sex: Female

DRUGS (4)
  1. INVEGA [Suspect]
     Indication: DRUG USE FOR UNKNOWN INDICATION
     Route: 048
  2. RESTARIL [Concomitant]
  3. LUNESTA [Concomitant]
  4. TOPAMAX [Concomitant]
     Indication: DRUG THERAPY

REACTIONS (2)
  - BREAST SWELLING [None]
  - GALACTORRHOEA [None]
